FAERS Safety Report 5127430-7 (Version None)
Quarter: 2006Q4

REPORT INFORMATION
  Report Type: 
  Country: None (occurrence: None)
  Receive Date: 20061016
  Receipt Date: 20061009
  Transmission Date: 20070319
  Serious: Yes (Other)
  Sender: FDA-Public Use
  Company Number: GB-BRACCO-BRO-010693

PATIENT
  Age: 23 Year
  Sex: Male
  Weight: 93 kg

DRUGS (1)
  1. PROHANCE [Suspect]
     Route: 042
     Dates: start: 20060919, end: 20060919

REACTIONS (1)
  - ABSCESS [None]
